APPROVED DRUG PRODUCT: LUMIFY
Active Ingredient: BRIMONIDINE TARTRATE
Strength: 0.025%
Dosage Form/Route: SOLUTION/DROPS;OPHTHALMIC
Application: N208144 | Product #001
Applicant: BAUSCH AND LOMB INC
Approved: Dec 22, 2017 | RLD: Yes | RS: Yes | Type: OTC

PATENTS:
Patent 8293742 | Expires: Jul 14, 2030
Patent 11596600 | Expires: Jul 27, 2029
Patent 9259425 | Expires: Jul 14, 2030
Patent 11833245 | Expires: Jul 27, 2029